FAERS Safety Report 9339496 (Version 4)
Quarter: 2013Q4

REPORT INFORMATION
  Report Type: Report from Study
  Country: US (occurrence: US)
  Receive Date: 20130610
  Receipt Date: 20131003
  Transmission Date: 20140711
  Serious: Yes (Hospitalization, Other)
  Sender: FDA-Public Use
  Company Number: US-SANOFI-AVENTIS-2013SA057763

PATIENT
  Age: 62 Year
  Sex: Female
  Weight: 54.88 kg

DRUGS (14)
  1. AUBAGIO [Suspect]
     Indication: MULTIPLE SCLEROSIS
     Route: 048
     Dates: start: 20130105, end: 20130509
  2. AUBAGIO [Suspect]
     Indication: MULTIPLE SCLEROSIS
     Route: 048
     Dates: start: 20130518, end: 20130718
  3. AUBAGIO [Suspect]
     Indication: MULTIPLE SCLEROSIS
     Route: 048
     Dates: start: 20130105, end: 20130509
  4. AUBAGIO [Suspect]
     Indication: MULTIPLE SCLEROSIS
     Route: 048
     Dates: start: 20130518, end: 20130718
  5. NEURONTIN [Concomitant]
     Indication: TREMOR
  6. ALL OTHER THERAPEUTIC PRODUCTS [Concomitant]
     Indication: FATIGUE
  7. BENICAR [Concomitant]
     Indication: HYPERTENSION
  8. CRESTOR [Concomitant]
     Indication: HYPERLIPIDAEMIA
  9. PROTONIX [Concomitant]
     Indication: GASTROOESOPHAGEAL REFLUX DISEASE
  10. FOSAMAX [Concomitant]
     Indication: OSTEOPENIA
  11. MACROBID [Concomitant]
     Indication: PROPHYLAXIS URINARY TRACT INFECTION
  12. VITAMIN B12 [Concomitant]
     Indication: NERVOUS SYSTEM DISORDER
  13. VITAMIN C [Concomitant]
     Indication: PROPHYLAXIS
  14. VITAMIN D [Concomitant]
     Indication: BONE DISORDER

REACTIONS (22)
  - Sepsis [Recovered/Resolved]
  - Colitis [Recovered/Resolved]
  - Faecal incontinence [Recovered/Resolved]
  - Diarrhoea [Recovered/Resolved]
  - Urinary tract infection [Recovered/Resolved]
  - Fatigue [Recovered/Resolved]
  - Pyrexia [Recovered/Resolved]
  - Somnolence [Recovered/Resolved]
  - Multiple sclerosis [Recovered/Resolved]
  - Asthenia [Recovered/Resolved]
  - Paraesthesia [Recovered/Resolved]
  - Loss of consciousness [Recovered/Resolved]
  - Asthenia [Recovered/Resolved]
  - Asthenia [Recovered/Resolved]
  - Decubitus ulcer [Recovered/Resolved]
  - Impaired healing [Recovered/Resolved]
  - Tooth fracture [Recovered/Resolved]
  - Blood pressure fluctuation [Recovered/Resolved]
  - Skin lesion [Recovered/Resolved]
  - Cough [Recovered/Resolved]
  - Burning sensation [Recovered/Resolved]
  - Nausea [Recovered/Resolved]
